FAERS Safety Report 4394359-1 (Version None)
Quarter: 2004Q3

REPORT INFORMATION
  Report Type: 
  Country: None (occurrence: None)
  Receive Date: 20040712
  Receipt Date: 20040702
  Transmission Date: 20050211
  Serious: Yes (Hospitalization, Other)
  Sender: FDA-Public Use
  Company Number: LB-MERCK-0407USA00184

PATIENT
  Sex: Female

DRUGS (4)
  1. ALLOPURINOL TAB [Concomitant]
     Route: 065
  2. PLAVIX [Concomitant]
     Route: 065
  3. LASIX [Concomitant]
     Route: 065
  4. ZOCOR [Suspect]
     Route: 048

REACTIONS (3)
  - ABDOMINAL PAIN UPPER [None]
  - DIALYSIS [None]
  - RENAL IMPAIRMENT [None]
